FAERS Safety Report 24160734 (Version 1)
Quarter: 2024Q3

REPORT INFORMATION
  Report Type: Spontaneous
  Country: US (occurrence: US)
  Receive Date: 20240801
  Receipt Date: 20240801
  Transmission Date: 20241017
  Serious: No
  Sender: SAGENT
  Company Number: US-SAGENT PHARMACEUTICALS-2024SAG000081

PATIENT
  Sex: Male

DRUGS (1)
  1. METHOCARBAMOL [Suspect]
     Active Substance: METHOCARBAMOL
     Indication: Muscle spasms
     Dosage: UNK
     Route: 042

REACTIONS (1)
  - Nausea [Unknown]
